FAERS Safety Report 8167460-4 (Version None)
Quarter: 2012Q1

REPORT INFORMATION
  Report Type: 
  Country: None (occurrence: None)
  Receive Date: 20120227
  Receipt Date: 20120220
  Transmission Date: 20120608
  Serious: Yes (Other)
  Sender: FDA-Public Use
  Company Number: US-PFIZER INC-2012044917

PATIENT
  Sex: Female
  Weight: 97.506 kg

DRUGS (10)
  1. ALBUTEROL [Concomitant]
     Dosage: UNK
  2. ACETYLSALICYLIC ACID [Concomitant]
     Dosage: 81 MG, 1X/DAY
  3. PRAVASTATIN [Concomitant]
     Dosage: UNK, 1X/DAY
  4. CELEBREX [Suspect]
     Indication: OSTEOARTHRITIS
     Dosage: 200 MG, 2X/DAY
     Route: 048
     Dates: end: 20110101
  5. LEVOTHYROXINE [Concomitant]
     Dosage: UNK
  6. SPIRONOLACTONE W/ HYDROCHLOROTHIAZIDE [Concomitant]
     Dosage: 25/25 MG, 1X/DAY
     Route: 048
  7. ALPRAZOLAM [Concomitant]
     Dosage: 0.25 MG, 1X/DAY
  8. VERAPAMIL [Concomitant]
     Dosage: 180 MG, 2X/DAY
  9. PREMARIN [Concomitant]
     Dosage: 0.625 MG, 1X/DAY
  10. TRAZODONE [Concomitant]
     Dosage: 50 MG, 1X/DAY

REACTIONS (7)
  - PAIN [None]
  - GAIT DISTURBANCE [None]
  - DYSSTASIA [None]
  - ACTIVITIES OF DAILY LIVING IMPAIRED [None]
  - ROTATOR CUFF SYNDROME [None]
  - RENAL DISORDER [None]
  - INTERVERTEBRAL DISC PROTRUSION [None]
